FAERS Safety Report 21372481 (Version 4)
Quarter: 2022Q4

REPORT INFORMATION
  Report Type: Report from Study
  Country: MX (occurrence: MX)
  Receive Date: 20220924
  Receipt Date: 20221027
  Transmission Date: 20230113
  Serious: Yes (Death, Other)
  Sender: FDA-Public Use
  Company Number: MX-NOVARTISPH-NVSC2022MX216389

PATIENT
  Age: 86 Year
  Sex: Female

DRUGS (3)
  1. EXELON [Suspect]
     Active Substance: RIVASTIGMINE TARTRATE
     Indication: Senile dementia
     Dosage: 0.25 DOSAGE FORM, QD, (9.5/ 10 MG, 1/4 PATCH)
     Route: 062
     Dates: start: 202010, end: 20220707
  2. EXELON [Suspect]
     Active Substance: RIVASTIGMINE TARTRATE
     Dosage: 0.5 DOSAGE FORM, QD (FOR THREE OR SIX MONTHS)
     Route: 065
  3. EXELON [Suspect]
     Active Substance: RIVASTIGMINE TARTRATE
     Dosage: 1 DOSAGE FORM, QD
     Route: 065
     Dates: start: 20220706

REACTIONS (8)
  - Myocardial infarction [Fatal]
  - Infarction [Fatal]
  - Aggression [Unknown]
  - Dysstasia [Unknown]
  - Bedridden [Unknown]
  - Wrong technique in product usage process [Unknown]
  - Intentional product misuse [Unknown]
  - Off label use [Unknown]

NARRATIVE: CASE EVENT DATE: 20201001
